FAERS Safety Report 6670037-0 (Version None)
Quarter: 2010Q2

REPORT INFORMATION
  Report Type: 
  Country: None (occurrence: None)
  Receive Date: 20100406
  Receipt Date: 20100208
  Transmission Date: 20101027
  Serious: No
  Sender: FDA-Public Use
  Company Number: US-ALLERGAN-1001606US

PATIENT
  Sex: Female

DRUGS (6)
  1. LATISSE [Suspect]
     Indication: GROWTH OF EYELASHES
     Dosage: 1 GTT, QHS
     Route: 061
  2. AROMASIN [Concomitant]
  3. HYDROCHLOROTHIAZIDE [Concomitant]
  4. BISOPROLOL FUMARATE AND HYDROCHLOROTHIAZIDE [Concomitant]
  5. CALCIUM [Concomitant]
  6. VITAMINS NOS [Concomitant]

REACTIONS (1)
  - SKIN DISCOLOURATION [None]
